FAERS Safety Report 7865373-6 (Version None)
Quarter: 2011Q4

REPORT INFORMATION
  Report Type: 
  Country: None (occurrence: None)
  Receive Date: 20111028
  Receipt Date: 20101207
  Transmission Date: 20120403
  Serious: No
  Sender: FDA-Public Use
  Company Number: US-GLAXOSMITHKLINE-A0898390A

PATIENT
  Age: 88 Year
  Sex: Male

DRUGS (2)
  1. ADVAIR DISKUS 100/50 [Suspect]
     Indication: PRODUCT USED FOR UNKNOWN INDICATION
     Dosage: 1PUFF TWICE PER DAY
     Route: 055
     Dates: start: 20070504, end: 20101101
  2. CONCURRENT MEDICATIONS [Concomitant]

REACTIONS (2)
  - CONDITION AGGRAVATED [None]
  - NONSPECIFIC REACTION [None]
